FAERS Safety Report 18567379 (Version 1)
Quarter: 2020Q4

REPORT INFORMATION
  Report Type: Other
  Country: DE (occurrence: DE)
  Receive Date: 20201202
  Receipt Date: 20201202
  Transmission Date: 20210114
  Serious: Yes (Other)
  Sender: FDA-Public Use
  Company Number: DE-ROCHE-2689260

PATIENT
  Age: 35 Year
  Sex: Female
  Weight: 84 kg

DRUGS (2)
  1. VAGISAN (GERMANY) [Concomitant]
     Route: 065
     Dates: start: 20200702, end: 20200709
  2. OCRELIZUMAB. [Suspect]
     Active Substance: OCRELIZUMAB
     Indication: MULTIPLE SCLEROSIS
     Route: 042
     Dates: start: 20191107, end: 20191107

REACTIONS (2)
  - Cholestasis of pregnancy [Recovered/Resolved]
  - Maternal exposure during pregnancy [Unknown]

NARRATIVE: CASE EVENT DATE: 20200819
